FAERS Safety Report 16432392 (Version 1)
Quarter: 2019Q2

REPORT INFORMATION
  Report Type: Spontaneous
  Country: US (occurrence: US)
  Receive Date: 20190614
  Receipt Date: 20190614
  Transmission Date: 20190711
  Serious: No
  Sender: FDA-Public Use
  Company Number: US-ASTRAZENECA-2019SE75782

PATIENT
  Sex: Female

DRUGS (1)
  1. BYDUREON [Suspect]
     Active Substance: EXENATIDE
     Indication: BLOOD GLUCOSE INCREASED
     Dosage: 2.0MG UNKNOWN
     Route: 065

REACTIONS (4)
  - Intentional product misuse [Unknown]
  - Myalgia [Unknown]
  - Nausea [Unknown]
  - Decreased appetite [Unknown]
